FAERS Safety Report 21012852 (Version 1)
Quarter: 2022Q2

REPORT INFORMATION
  Report Type: Spontaneous
  Country: US (occurrence: US)
  Receive Date: 20220627
  Receipt Date: 20220627
  Transmission Date: 20220721
  Serious: No
  Sender: FDA-Public Use
  Company Number: US-SA-SAC20220620000775

PATIENT
  Age: 30 Year
  Sex: Female

DRUGS (12)
  1. DUPIXENT [Suspect]
     Active Substance: DUPILUMAB
     Indication: Dermatitis atopic
     Dosage: 600 MG, 1X
     Route: 058
     Dates: start: 20220616
  2. ALPRAZOLAM [Concomitant]
     Active Substance: ALPRAZOLAM
     Dosage: UNK
  3. AZITHROMYCIN [Concomitant]
     Active Substance: AZITHROMYCIN
  4. CLOBETASOL [Concomitant]
     Active Substance: CLOBETASOL
     Dosage: UNK
  5. COSENTYX [Concomitant]
     Active Substance: SECUKINUMAB
     Dosage: 300 UNK
  6. ESCITALOPRAM [Concomitant]
     Active Substance: ESCITALOPRAM OXALATE
     Dosage: UNK
  7. HUMIRA [Concomitant]
     Active Substance: ADALIMUMAB
  8. NABUMETONE [Concomitant]
     Active Substance: NABUMETONE
  9. ONDANSETRON [Concomitant]
     Active Substance: ONDANSETRON
  10. PREDNISONE [Concomitant]
     Active Substance: PREDNISONE
  11. SERTRALINE [Concomitant]
     Active Substance: SERTRALINE HYDROCHLORIDE
  12. SERTRALINE [Concomitant]
     Active Substance: SERTRALINE HYDROCHLORIDE

REACTIONS (3)
  - Infection [Not Recovered/Not Resolved]
  - Skin lesion [Not Recovered/Not Resolved]
  - Dermatitis atopic [Not Recovered/Not Resolved]

NARRATIVE: CASE EVENT DATE: 20220601
